FAERS Safety Report 5236306-6 (Version None)
Quarter: 2007Q1

REPORT INFORMATION
  Report Type: 
  Country: None (occurrence: None)
  Receive Date: 20070212
  Receipt Date: 20070131
  Transmission Date: 20070707
  Serious: Yes (Other)
  Sender: FDA-Public Use
  Company Number: US-PFIZER INC-2007008216

PATIENT
  Sex: Female
  Weight: 79.4 kg

DRUGS (6)
  1. CHANTIX [Suspect]
     Indication: SMOKING CESSATION THERAPY
     Route: 048
     Dates: start: 20061101, end: 20070101
  2. TEGRETOL [Concomitant]
     Route: 065
  3. HALDOL [Concomitant]
     Route: 065
  4. LITHIUM CARBONATE [Concomitant]
     Route: 065
  5. SEROQUEL [Concomitant]
     Route: 065
  6. TRAZODONE HCL [Concomitant]
     Route: 065

REACTIONS (5)
  - DELUSIONAL PERCEPTION [None]
  - MANIA [None]
  - MOOD SWINGS [None]
  - NAUSEA [None]
  - VOMITING [None]
